FAERS Safety Report 15621768 (Version 1)
Quarter: 2018Q4

REPORT INFORMATION
  Report Type: Spontaneous
  Country: US (occurrence: US)
  Receive Date: 20181115
  Receipt Date: 20181115
  Transmission Date: 20190205
  Serious: Yes (Other)
  Sender: FDA-Public Use
  Company Number: US-PFIZER INC-2018464844

PATIENT
  Age: 13 Day
  Sex: Male

DRUGS (4)
  1. SIROLIMUS. [Concomitant]
     Active Substance: SIROLIMUS
     Indication: ANGIOSARCOMA
     Dosage: 0.8 MG/M2, 2X/DAY (WITH PLASMATIC LEVEL MONITORING TARGET 10-15 NG/ML)
  2. PREDNISOLONE. [Concomitant]
     Active Substance: PREDNISOLONE
     Indication: ANGIOSARCOMA
     Dosage: 2 MG/KG, DAILY
     Route: 048
  3. PREDNISOLONE. [Concomitant]
     Active Substance: PREDNISOLONE
     Dosage: UNK (STEROIDS WERE WEANED BY 15% EVERY 2 WEEKS)
     Route: 048
  4. VINCRISTINE SULFATE. [Suspect]
     Active Substance: VINCRISTINE SULFATE
     Indication: ANGIOSARCOMA
     Dosage: 0.125 MG/KG, WEEKLY

REACTIONS (2)
  - Sepsis [Unknown]
  - Vascular device infection [Unknown]
